FAERS Safety Report 12862269 (Version 1)
Quarter: 2016Q4

REPORT INFORMATION
  Report Type: Spontaneous
  Country: US (occurrence: US)
  Receive Date: 20161019
  Receipt Date: 20161019
  Transmission Date: 20170207
  Serious: No
  Sender: FDA-Public Use
  Company Number: US-ALK ABELLO INC-1058517

PATIENT
  Age: 10 Year
  Sex: Female

DRUGS (1)
  1. HISTAMINE POSITIVE [Suspect]
     Active Substance: HISTAMINE PHOSPHATE
     Route: 062
     Dates: start: 20160914, end: 20160914

REACTIONS (1)
  - Drug ineffective [Recovered/Resolved]

NARRATIVE: CASE EVENT DATE: 20160914
